FAERS Safety Report 11032098 (Version 1)
Quarter: 2015Q2

REPORT INFORMATION
  Report Type: Spontaneous
  Country: US (occurrence: None)
  Receive Date: 20150414
  Receipt Date: 20150414
  Transmission Date: 20150821
  Serious: Yes (Other)
  Sender: FDA-Public Use
  Company Number: 201504046

PATIENT
  Sex: Male

DRUGS (1)
  1. TESTOPEL [Suspect]
     Active Substance: TESTOSTERONE
     Indication: PRODUCT USED FOR UNKNOWN INDICATION
     Route: 058
     Dates: start: 201312

REACTIONS (7)
  - Discomfort [None]
  - Implant site mass [None]
  - Impaired work ability [None]
  - Implant site irritation [None]
  - Implant site pain [None]
  - Expulsion of medication [None]
  - Product solubility abnormal [None]
